FAERS Safety Report 20573528 (Version 1)
Quarter: 2022Q1

REPORT INFORMATION
  Report Type: Spontaneous
  Country: US (occurrence: None)
  Receive Date: 20220309
  Receipt Date: 20220309
  Transmission Date: 20220423
  Serious: Yes (unspecified)
  Sender: FDA-Public Use
  Company Number: None

PATIENT
  Age: 75 Year
  Sex: Female
  Weight: 59.87 kg

DRUGS (27)
  1. CARBIDOPA\LEVODOPA [Suspect]
     Active Substance: CARBIDOPA\LEVODOPA
     Indication: Dementia
     Dosage: FREQUENCY : TWICE A DAY;?
     Route: 048
     Dates: start: 20211107, end: 20211120
  2. CARBIDOPA\LEVODOPA [Suspect]
     Active Substance: CARBIDOPA\LEVODOPA
     Indication: Parkinson^s disease
  3. CARBIDOPA\LEVODOPA [Suspect]
     Active Substance: CARBIDOPA\LEVODOPA
  4. ATOMOXETINE [Concomitant]
     Active Substance: ATOMOXETINE
  5. BUPROPION [Concomitant]
     Active Substance: BUPROPION
  6. CITALOPRAM [Concomitant]
     Active Substance: CITALOPRAM HYDROBROMIDE
  7. DONEPEZIL [Concomitant]
     Active Substance: DONEPEZIL
  8. FAMOTIDINE [Concomitant]
     Active Substance: FAMOTIDINE
  9. FLUDROCORTISONE [Concomitant]
     Active Substance: FLUDROCORTISONE
  10. GABAPENTIN [Concomitant]
     Active Substance: GABAPENTIN
  11. IBANDRONATE SODIUM [Concomitant]
     Active Substance: IBANDRONATE SODIUM
  12. MEMANTINE [Concomitant]
     Active Substance: MEMANTINE
  13. MYREBTRIQ [Concomitant]
  14. PANTOPRAZOLE [Concomitant]
     Active Substance: PANTOPRAZOLE
  15. PYRIDOSTIGMINE [Concomitant]
     Active Substance: PYRIDOSTIGMINE
  16. SIMVASTATIN [Concomitant]
     Active Substance: SIMVASTATIN
  17. SUCRALFATE [Concomitant]
     Active Substance: SUCRALFATE
  18. ASCORBIC ACID [Concomitant]
     Active Substance: ASCORBIC ACID
  19. ASPIRIN [Concomitant]
     Active Substance: ASPIRIN
  20. CALCIUM [Concomitant]
     Active Substance: CALCIUM
  21. VITAMIN D3 [Concomitant]
     Active Substance: CHOLECALCIFEROL
  22. FISH OIL [Concomitant]
     Active Substance: FISH OIL
  23. IRON [Concomitant]
     Active Substance: IRON
  24. LORATADINE [Concomitant]
     Active Substance: LORATADINE
  25. PROBIOTICS NOS [Concomitant]
     Active Substance: PROBIOTICS NOS
  26. WOMENS MULTIVIT [Concomitant]
  27. ZINC [Concomitant]
     Active Substance: ZINC

REACTIONS (4)
  - Hallucination [None]
  - Anxiety [None]
  - Screaming [None]
  - Abnormal behaviour [None]

NARRATIVE: CASE EVENT DATE: 20211104
